FAERS Safety Report 15535179 (Version 1)
Quarter: 2018Q4

REPORT INFORMATION
  Report Type: Spontaneous
  Country: CN (occurrence: CN)
  Receive Date: 20181022
  Receipt Date: 20181022
  Transmission Date: 20190205
  Serious: Yes (Hospitalization)
  Sender: FDA-Public Use
  Company Number: CN-AMERIGEN PHARMACEUTICALS, INC-2018AMG000022

PATIENT

DRUGS (2)
  1. TRANEXAMIC ACID UNKNOWN [Suspect]
     Active Substance: TRANEXAMIC ACID
     Dosage: 1 G, UNK, OUTSIDE THE DURA MATER THROUGH INDUCED TUBE
     Route: 042
     Dates: start: 20170321
  2. TRANEXAMIC ACID UNKNOWN [Suspect]
     Active Substance: TRANEXAMIC ACID
     Indication: SURGERY
     Dosage: 0.5 G, UNK, 30 MIN BEFORE OPERATION
     Route: 042
     Dates: start: 20170321

REACTIONS (1)
  - Epilepsy [Recovered/Resolved]

NARRATIVE: CASE EVENT DATE: 20170321
